FAERS Safety Report 18493629 (Version 8)
Quarter: 2023Q1

REPORT INFORMATION
  Report Type: Report from Study
  Country: US (occurrence: US)
  Receive Date: 20201111
  Receipt Date: 20230111
  Transmission Date: 20230417
  Serious: Yes (Hospitalization, Other)
  Sender: FDA-Public Use
  Company Number: US-TAKEDA-2020TUS048047

PATIENT
  Sex: Male
  Weight: 88.43 kg

DRUGS (16)
  1. LANADELUMAB [Suspect]
     Active Substance: LANADELUMAB
     Indication: Hereditary angioedema
     Dosage: 300 MILLIGRAM
     Route: 058
     Dates: start: 20200706
  2. LANADELUMAB [Suspect]
     Active Substance: LANADELUMAB
     Indication: Immune system disorder
     Dosage: UNK
     Route: 058
     Dates: start: 20200801
  3. LANADELUMAB [Suspect]
     Active Substance: LANADELUMAB
     Dosage: UNK
     Route: 058
     Dates: start: 20200811
  4. LANADELUMAB [Suspect]
     Active Substance: LANADELUMAB
     Dosage: 300 MILLIGRAM, Q2WEEKS
     Route: 058
  5. LANADELUMAB [Suspect]
     Active Substance: LANADELUMAB
     Dosage: 300 MILLIGRAM, Q2WEEKS
     Route: 058
     Dates: start: 20221014
  6. FIRAZYR [Suspect]
     Active Substance: ICATIBANT ACETATE
     Indication: Immune system disorder
     Dosage: 30 MILLIGRAM
     Route: 065
     Dates: start: 20200706
  7. FIRAZYR [Suspect]
     Active Substance: ICATIBANT ACETATE
     Indication: Immune system disorder
     Dosage: 30 MILLIGRAM
     Route: 065
     Dates: start: 20200706
  8. FIRAZYR [Suspect]
     Active Substance: ICATIBANT ACETATE
     Dosage: UNK
     Route: 058
     Dates: start: 20200811
  9. FIRAZYR [Suspect]
     Active Substance: ICATIBANT ACETATE
     Dosage: UNK
     Route: 058
     Dates: start: 20200811
  10. FIRAZYR [Suspect]
     Active Substance: ICATIBANT ACETATE
     Dosage: 30 MILLIGRAM
     Route: 058
     Dates: start: 20200811
  11. FIRAZYR [Suspect]
     Active Substance: ICATIBANT ACETATE
     Dosage: 30 MILLIGRAM
     Route: 058
     Dates: start: 20200811
  12. FIRAZYR [Suspect]
     Active Substance: ICATIBANT ACETATE
     Dosage: UNK
     Route: 058
  13. FIRAZYR [Suspect]
     Active Substance: ICATIBANT ACETATE
     Dosage: UNK
     Route: 058
  14. FIRAZYR [Suspect]
     Active Substance: ICATIBANT ACETATE
     Dosage: 30 MILLIGRAM, Q2WEEKS
     Route: 058
     Dates: start: 20211002
  15. FIRAZYR [Suspect]
     Active Substance: ICATIBANT ACETATE
     Dosage: 30 MILLIGRAM, Q2WEEKS
     Route: 058
     Dates: start: 20211002
  16. OMEPRAZOLE [Concomitant]
     Active Substance: OMEPRAZOLE
     Route: 065

REACTIONS (9)
  - Hereditary angioedema [Unknown]
  - Weight decreased [Unknown]
  - Weight increased [Unknown]
  - COVID-19 [Unknown]
  - Post procedural infection [Unknown]
  - Drug hypersensitivity [Unknown]
  - Nausea [Unknown]
  - Dizziness [Unknown]
  - Product dose omission issue [Unknown]
